FAERS Safety Report 14323909 (Version 1)
Quarter: 2017Q4

REPORT INFORMATION
  Report Type: Spontaneous
  Country: FR (occurrence: FR)
  Receive Date: 20171226
  Receipt Date: 20171226
  Transmission Date: 20180321
  Serious: Yes (Hospitalization)
  Sender: FDA-Public Use
  Company Number: PHHY2017FR191733

PATIENT
  Age: 69 Year
  Sex: Male
  Weight: 78 kg

DRUGS (11)
  1. PARACETAMOL [Concomitant]
     Active Substance: ACETAMINOPHEN
     Indication: PRODUCT USED FOR UNKNOWN INDICATION
     Dosage: UNK
     Route: 005
  2. RIFADINE [Suspect]
     Active Substance: RIFAMPIN
     Indication: MEDICAL DEVICE SITE INFECTION
     Dosage: 600 MG, UNK
     Route: 048
     Dates: start: 20170609
  3. LIPANTHYL [Concomitant]
     Active Substance: FENOFIBRATE
     Indication: PRODUCT USED FOR UNKNOWN INDICATION
     Dosage: UNK
     Route: 065
  4. KARDEGIC [Concomitant]
     Active Substance: ASPIRIN DL-LYSINE
     Indication: PRODUCT USED FOR UNKNOWN INDICATION
     Dosage: UNK
     Route: 065
  5. LEVOFLOXACIN. [Suspect]
     Active Substance: LEVOFLOXACIN
     Indication: MEDICAL DEVICE SITE INFECTION
     Dosage: 500 MG, UNK
     Route: 048
     Dates: start: 20170609, end: 20170610
  6. TARGOCID [Suspect]
     Active Substance: TEICOPLANIN
     Indication: MEDICAL DEVICE SITE INFECTION
     Dosage: 1000 MG, UNK
     Route: 041
     Dates: start: 20170609
  7. TARGOCID [Suspect]
     Active Substance: TEICOPLANIN
     Dosage: 1000 MG, UNK
     Route: 041
     Dates: start: 20170619
  8. RIFADINE [Suspect]
     Active Substance: RIFAMPIN
     Dosage: 600 MG, UNK
     Route: 048
     Dates: start: 20170620
  9. ZYLORIC [Concomitant]
     Active Substance: ALLOPURINOL
     Indication: PRODUCT USED FOR UNKNOWN INDICATION
     Dosage: UNK
     Route: 065
  10. PANTOPRAZOLE [Concomitant]
     Active Substance: PANTOPRAZOLE
     Indication: PRODUCT USED FOR UNKNOWN INDICATION
     Dosage: UNK
     Route: 065
  11. LOSARTAN. [Concomitant]
     Active Substance: LOSARTAN
     Indication: PRODUCT USED FOR UNKNOWN INDICATION
     Dosage: UNK
     Route: 065

REACTIONS (1)
  - Bacterial diarrhoea [Recovered/Resolved]

NARRATIVE: CASE EVENT DATE: 20170610
